FAERS Safety Report 11688386 (Version 3)
Quarter: 2016Q1

REPORT INFORMATION
  Report Type: Report from Study
  Country: US (occurrence: US)
  Receive Date: 20151031
  Receipt Date: 20160104
  Transmission Date: 20160525
  Serious: No
  Sender: FDA-Public Use
  Company Number: PHEH2014US025232

PATIENT
  Age: 55 Year
  Sex: Male
  Weight: 81.19 kg

DRUGS (1)
  1. GILENYA [Suspect]
     Active Substance: FINGOLIMOD HYDROCHLORIDE
     Indication: MULTIPLE SCLEROSIS
     Dosage: 0.5 MG, QD
     Route: 048
     Dates: start: 20141125

REACTIONS (19)
  - Thinking abnormal [Not Recovered/Not Resolved]
  - Discomfort [Not Recovered/Not Resolved]
  - Diarrhoea [Unknown]
  - Pain in extremity [Unknown]
  - Nasopharyngitis [Not Recovered/Not Resolved]
  - Cognitive disorder [Recovered/Resolved]
  - Memory impairment [Recovered/Resolved]
  - Fatigue [Recovered/Resolved]
  - Cough [Not Recovered/Not Resolved]
  - Muscle spasms [Not Recovered/Not Resolved]
  - Weight decreased [Not Recovered/Not Resolved]
  - Dizziness [Unknown]
  - Discomfort [Recovered/Resolved]
  - Balance disorder [Recovered/Resolved]
  - Visual field defect [Not Recovered/Not Resolved]
  - Feeling abnormal [Unknown]
  - Cognitive disorder [Not Recovered/Not Resolved]
  - Stress [Unknown]
  - Malaise [Unknown]

NARRATIVE: CASE EVENT DATE: 20141125
